FAERS Safety Report 6785669-9 (Version None)
Quarter: 2010Q2

REPORT INFORMATION
  Report Type: 
  Country: None (occurrence: None)
  Receive Date: 20100623
  Receipt Date: 20100614
  Transmission Date: 20101027
  Serious: Yes (Hospitalization)
  Sender: FDA-Public Use
  Company Number: US-JNJFOC-20100600489

PATIENT
  Sex: Male
  Weight: 72.58 kg

DRUGS (11)
  1. RISPERDAL CONSTA [Suspect]
     Indication: SCHIZOAFFECTIVE DISORDER
     Dosage: EVERY 2 WEEKS
     Route: 030
  2. RISPERDAL CONSTA [Suspect]
     Indication: SCHIZOPHRENIA
     Dosage: EVERY 2 WEEKS
     Route: 030
  3. RISPERDAL [Suspect]
     Indication: SCHIZOAFFECTIVE DISORDER
     Route: 048
  4. RISPERDAL [Suspect]
     Indication: SCHIZOPHRENIA
     Route: 048
  5. DEPAKOTE [Concomitant]
     Indication: SCHIZOAFFECTIVE DISORDER
     Route: 048
     Dates: start: 20080101
  6. TRAZODONE HYDROCHLORIDE [Concomitant]
     Indication: SCHIZOAFFECTIVE DISORDER
     Route: 048
     Dates: start: 20080101
  7. ATIVAN [Concomitant]
     Indication: AGITATION
     Route: 065
     Dates: start: 20060101, end: 20080101
  8. HALDOL [Concomitant]
     Indication: AGITATION
     Dosage: IN NIGHT
     Route: 048
     Dates: start: 20080101
  9. VITAMIN TAB [Concomitant]
     Route: 065
  10. THYROID THERAPY [Concomitant]
     Route: 065
  11. PSYCHOTROPICS NOS [Concomitant]
     Route: 065

REACTIONS (11)
  - AGITATION [None]
  - DROOLING [None]
  - DYSKINESIA [None]
  - FEELING OF RELAXATION [None]
  - FLUOROSIS [None]
  - FOOD CRAVING [None]
  - GENERAL PHYSICAL HEALTH DETERIORATION [None]
  - MUSCLE SPASMS [None]
  - SOMNOLENCE [None]
  - TREMOR [None]
  - WEIGHT INCREASED [None]
